FAERS Safety Report 10529832 (Version 2)
Quarter: 2014Q4

REPORT INFORMATION
  Report Type: Spontaneous
  Country: US (occurrence: None)
  Receive Date: 20141017
  Receipt Date: 20141017
  Transmission Date: 20150528
  Serious: Yes (Hospitalization)
  Sender: FDA-Public Use
  Company Number: 2557659

PATIENT
  Age: 6 Year
  Sex: Female

DRUGS (12)
  1. CLOFARABINE [Suspect]
     Active Substance: CLOFARABINE
     Indication: B PRECURSOR TYPE ACUTE LEUKAEMIA
     Dates: start: 20131213
  2. VINCRISTINE SULFATE. [Suspect]
     Active Substance: VINCRISTINE SULFATE
     Indication: B PRECURSOR TYPE ACUTE LEUKAEMIA
     Dates: start: 20131213
  3. FILGRASTIM [Concomitant]
     Active Substance: FILGRASTIM
  4. LEVOFLOXACIN. [Concomitant]
     Active Substance: LEVOFLOXACIN
  5. VORICONAZOLE. [Concomitant]
     Active Substance: VORICONAZOLE
  6. CYPROHEPTADINE. [Concomitant]
     Active Substance: CYPROHEPTADINE
  7. ETOPOSIDE. [Suspect]
     Active Substance: ETOPOSIDE
     Indication: B PRECURSOR TYPE ACUTE LEUKAEMIA
     Dates: start: 20131213
  8. PEGASPARGASE [Suspect]
     Active Substance: PEGASPARGASE
     Indication: B PRECURSOR TYPE ACUTE LEUKAEMIA
     Dates: start: 20131213
  9. SODIUM CHLORIDE. [Concomitant]
     Active Substance: SODIUM CHLORIDE
  10. LIDOCAINE/PRILOCAINE [Concomitant]
  11. SULFAMETOXAZOL/TRIMETOPRIM [Concomitant]
  12. CYCLOPHOSPHAMIDE. [Suspect]
     Active Substance: CYCLOPHOSPHAMIDE
     Indication: B PRECURSOR TYPE ACUTE LEUKAEMIA
     Dates: start: 20131213

REACTIONS (6)
  - Streptococcus test positive [None]
  - Stomatitis [None]
  - Nausea [None]
  - Blood culture positive [None]
  - Decreased appetite [None]
  - Hypoxia [None]

NARRATIVE: CASE EVENT DATE: 20140303
